FAERS Safety Report 21654948 (Version 1)
Quarter: 2022Q4

REPORT INFORMATION
  Report Type: Spontaneous
  Country: IE (occurrence: IE)
  Receive Date: 20221129
  Receipt Date: 20221129
  Transmission Date: 20230113
  Serious: Yes (Other)
  Sender: FDA-Public Use
  Company Number: IE-TEVA-2022-IE-2830232

PATIENT
  Age: 72 Year
  Sex: Male

DRUGS (7)
  1. ETOPOSIDE [Suspect]
     Active Substance: ETOPOSIDE
     Indication: Diffuse large B-cell lymphoma
     Dosage: ADMINISTERED AS A PART OF R-EPOCH REGIMEN
     Route: 065
  2. DOXORUBICIN HYDROCHLORIDE [Suspect]
     Active Substance: DOXORUBICIN HYDROCHLORIDE
     Indication: Diffuse large B-cell lymphoma
     Dosage: ADMINISTERED AS A PART OF R-EPOCH REGIMEN, R-CHOP REGIMEN AND R-MINI-CHOP REGIMEN (HERE MINI MEAN...
     Route: 065
  3. METHOTREXATE [Suspect]
     Active Substance: METHOTREXATE
     Indication: Diffuse large B-cell lymphoma
     Dosage: ADMINISTERED AS A PART OF R-EPOCH REGIMEN
     Route: 037
  4. CYCLOPHOSPHAMIDE [Suspect]
     Active Substance: CYCLOPHOSPHAMIDE
     Indication: Diffuse large B-cell lymphoma
     Dosage: ADMINISTERED AS A PART OF R-EPOCH REGIMEN, R-CHOP REGIMEN AND R-MINI-CHOP REGIMEN (HERE MINI MEAN...
     Route: 065
  5. VINCRISTINE [Suspect]
     Active Substance: VINCRISTINE
     Indication: Diffuse large B-cell lymphoma
     Dosage: ADMINISTERED AS A PART OF R-EPOCH REGIMEN, R-CHOP REGIMEN AND R-MINI-CHOP REGIMEN (HERE MINI MEAN...
     Route: 065
  6. PREDNISOLONE [Suspect]
     Active Substance: PREDNISOLONE
     Indication: Diffuse large B-cell lymphoma
     Dosage: ADMINISTERED AS A PART OF R-EPOCH REGIMEN, R-CHOP REGIMEN AND R-MINI-CHOP REGIMEN (HERE MINI MEAN...
     Route: 065
  7. RITUXIMAB [Suspect]
     Active Substance: RITUXIMAB
     Indication: Diffuse large B-cell lymphoma
     Dosage: ADMINISTERED AS A PART OF R-EPOCH REGIMEN, R-CHOP REGIMEN AND R-MINI-CHOP REGIMEN (HERE MINI MEAN...
     Route: 065

REACTIONS (5)
  - Neutropenic sepsis [Unknown]
  - Neutropenia [Unknown]
  - Atrial fibrillation [Unknown]
  - Cardiomyopathy [Unknown]
  - Deep vein thrombosis [Unknown]
